FAERS Safety Report 7399117-1 (Version None)
Quarter: 2011Q1

REPORT INFORMATION
  Report Type: 
  Country: None (occurrence: None)
  Receive Date: 20110301
  Receipt Date: 20100324
  Transmission Date: 20110831
  Serious: Yes (Hospitalization)
  Sender: FDA-Public Use
  Company Number: RB-05391-2010

PATIENT
  Age: 6 Year
  Sex: Male

DRUGS (1)
  1. SUBOXONE [Suspect]
     Indication: ACCIDENTAL EXPOSURE
     Dosage: ORAL
     Route: 048
     Dates: start: 20100116, end: 20100116

REACTIONS (3)
  - VOMITING [None]
  - MALAISE [None]
  - ACCIDENTAL EXPOSURE [None]
